FAERS Safety Report 17280766 (Version 1)
Quarter: 2020Q1

REPORT INFORMATION
  Report Type: Report from Study
  Country: US (occurrence: US)
  Receive Date: 20200117
  Receipt Date: 20200117
  Transmission Date: 20200409
  Serious: Yes (Hospitalization)
  Sender: FDA-Public Use
  Company Number: US-ROCHE-2516432

PATIENT

DRUGS (5)
  1. ATEZOLIZUMAB. [Suspect]
     Active Substance: ATEZOLIZUMAB
     Indication: NEOPLASM MALIGNANT
     Route: 042
  2. PEMBROLIZUMAB. [Suspect]
     Active Substance: PEMBROLIZUMAB
     Indication: NEOPLASM MALIGNANT
     Route: 065
  3. DURVALUMAB. [Suspect]
     Active Substance: DURVALUMAB
     Indication: NEOPLASM MALIGNANT
     Route: 065
  4. NIVOLUMAB [Suspect]
     Active Substance: NIVOLUMAB
     Indication: NEOPLASM MALIGNANT
     Route: 065
  5. IPILIMUMAB [Suspect]
     Active Substance: IPILIMUMAB
     Indication: NEOPLASM MALIGNANT
     Route: 065

REACTIONS (11)
  - Pericarditis [Unknown]
  - Hypothyroidism [Unknown]
  - Autoimmune hepatitis [Unknown]
  - Hepatitis [Unknown]
  - Colitis [Unknown]
  - Intestinal perforation [Unknown]
  - Nephritis [Unknown]
  - Pneumonitis [Unknown]
  - Pancreatitis acute [Unknown]
  - Rash [Unknown]
  - Immune thrombocytopenic purpura [Unknown]
